FAERS Safety Report 4357093-X (Version None)
Quarter: 2004Q2

REPORT INFORMATION
  Report Type: 
  Country: None (occurrence: None)
  Receive Date: 20040507
  Receipt Date: 20040426
  Transmission Date: 20050107
  Serious: No
  Sender: FDA-Public Use
  Company Number: 2004CG00801

PATIENT
  Age: 40 Year
  Sex: Female

DRUGS (1)
  1. NAROPIN [Suspect]
     Indication: LOCAL ANAESTHESIA
     Dates: start: 20011112, end: 20011112

REACTIONS (1)
  - SCIATIC NERVE PALSY [None]
